FAERS Safety Report 14351314 (Version 6)
Quarter: 2018Q2

REPORT INFORMATION
  Report Type: Report from Study
  Country: FR (occurrence: FR)
  Receive Date: 20180104
  Receipt Date: 20180507
  Transmission Date: 20180711
  Serious: Yes (Life-Threatening, Disabling, Other)
  Sender: FDA-Public Use
  Company Number: FR-PFIZER INC-2017551732

PATIENT
  Age: 6 Year
  Sex: Female

DRUGS (28)
  1. ATARAX [Concomitant]
     Active Substance: HYDROXYZINE HYDROCHLORIDE
  2. BECILAN [Concomitant]
     Active Substance: PYRIDOXINE
     Dosage: UNK
  3. VINCRISTINE SULFATE. [Suspect]
     Active Substance: VINCRISTINE SULFATE
     Indication: ACUTE LYMPHOCYTIC LEUKAEMIA
     Dosage: 1.3 MG, 1X/DAY
     Route: 042
     Dates: start: 20171130, end: 20171130
  4. CYTARABINE. [Suspect]
     Active Substance: CYTARABINE
     Dosage: 30 MG, 1X/DAY
     Route: 037
     Dates: start: 20171118, end: 20171118
  5. CATAPRESSAN /00171101/ [Concomitant]
     Active Substance: CLONIDINE
     Indication: HYPERTENSION
  6. CYTARABINE. [Suspect]
     Active Substance: CYTARABINE
     Indication: ACUTE LYMPHOCYTIC LEUKAEMIA
     Dosage: 65 MG, 1X/DAY
     Route: 042
     Dates: start: 20171118, end: 20171128
  7. URSOLVAN [Concomitant]
     Active Substance: URSODIOL
     Dosage: UNK
  8. SPASFON /00765801/ [Concomitant]
     Active Substance: PHLOROGLUCINOL\1,3,5-TRIMETHOXYBENZENE
     Dosage: UNK
  9. MEROPENEM. [Concomitant]
     Active Substance: MEROPENEM
     Indication: INFECTION
  10. PARACETAMOL [Concomitant]
     Active Substance: ACETAMINOPHEN
     Indication: PAIN
  11. CONTRAMAL [Concomitant]
     Active Substance: TRAMADOL HYDROCHLORIDE
  12. PURINETHOL [Suspect]
     Active Substance: MERCAPTOPURINE
     Indication: ACUTE LYMPHOCYTIC LEUKAEMIA
     Dosage: 50 MG, 1X/DAY
     Route: 048
     Dates: start: 20171116, end: 20171129
  13. METHOTREXATE SODIUM. [Suspect]
     Active Substance: METHOTREXATE SODIUM
     Indication: ACUTE LYMPHOCYTIC LEUKAEMIA
     Dosage: 12 MG, 1X/DAY:QD
     Route: 037
     Dates: start: 20171118, end: 20171118
  14. LANSOYL [Concomitant]
     Active Substance: MINERAL OIL
     Dosage: UNK
  15. OMEPRAZOLE. [Concomitant]
     Active Substance: OMEPRAZOLE
     Dosage: UNK
  16. SUFENTA [Concomitant]
     Active Substance: SUFENTANIL CITRATE
     Indication: ANAESTHETIC COMPLICATION
  17. MIDAZOLAM [Concomitant]
     Active Substance: MIDAZOLAM HYDROCHLORIDE
     Indication: ANAESTHETIC COMPLICATION
  18. MORPHINE [Concomitant]
     Active Substance: MORPHINE
  19. HYDROCORTISONE. [Suspect]
     Active Substance: HYDROCORTISONE
     Indication: ACUTE LYMPHOCYTIC LEUKAEMIA
     Dosage: 15 MG, 1X/DAY
     Route: 037
     Dates: start: 20171118, end: 20171118
  20. LARGACTIL /00011901/ [Concomitant]
     Active Substance: CHLORPROMAZINE
     Indication: NEUROLEPTIC MALIGNANT SYNDROME
     Dosage: UNK
  21. CORTANCYL [Concomitant]
     Active Substance: PREDNISONE
     Dosage: UNK
  22. BACTRIM [Concomitant]
     Active Substance: SULFAMETHOXAZOLE\TRIMETHOPRIM
     Indication: INFECTION
     Dosage: UNK
  23. VANCOMYCIN [Concomitant]
     Active Substance: VANCOMYCIN
     Indication: INFECTION
  24. ONCASPAR [Suspect]
     Active Substance: PEGASPARGASE
     Indication: ACUTE LYMPHOCYTIC LEUKAEMIA
     Dosage: 2175 IU, 1X/DAY
     Route: 042
     Dates: start: 20171130, end: 20171130
  25. CYCLOPHOSPHAMIDE. [Suspect]
     Active Substance: CYCLOPHOSPHAMIDE
     Indication: ACUTE LYMPHOCYTIC LEUKAEMIA
     Dosage: 880 MG, 1X/DAY
     Route: 042
     Dates: start: 20171116, end: 20171116
  26. BEVITINE [Concomitant]
     Active Substance: THIAMINE
     Dosage: UNK
  27. ZOPHREN /00955301/ [Concomitant]
     Active Substance: ONDANSETRON
     Indication: NAUSEA
     Dosage: UNK
  28. PROPOFOL. [Concomitant]
     Active Substance: PROPOFOL
     Indication: ANAESTHETIC COMPLICATION

REACTIONS (2)
  - Escherichia sepsis [Recovered/Resolved]
  - Pancreatitis acute [Recovered/Resolved with Sequelae]

NARRATIVE: CASE EVENT DATE: 20171206
